FAERS Safety Report 12126649 (Version 1)
Quarter: 2016Q1

REPORT INFORMATION
  Report Type: Spontaneous
  Country: US (occurrence: US)
  Receive Date: 20160229
  Receipt Date: 20160229
  Transmission Date: 20160526
  Serious: Yes (Hospitalization, Other)
  Sender: FDA-Public Use
  Company Number: US-GLAXOSMITHKLINE-US2016026671

PATIENT
  Age: 67 Year
  Sex: Male

DRUGS (2)
  1. ASMANEX [Concomitant]
     Active Substance: MOMETASONE FUROATE
  2. VENTOLIN HFA [Suspect]
     Active Substance: ALBUTEROL SULFATE
     Indication: ASTHMA
     Dosage: 1 PUFF(S), PRN
     Route: 055

REACTIONS (6)
  - Respiratory tract irritation [Recovered/Resolved]
  - Drug dose omission [Unknown]
  - Arterial repair [Unknown]
  - Catheter placement [Unknown]
  - Dyspnoea [Recovered/Resolved]
  - Myocardial infarction [Unknown]

NARRATIVE: CASE EVENT DATE: 201508
